FAERS Safety Report 20207531 (Version 1)
Quarter: 2021Q4

REPORT INFORMATION
  Report Type: Spontaneous
  Country: CN (occurrence: CN)
  Receive Date: 20211220
  Receipt Date: 20211220
  Transmission Date: 20220303
  Serious: Yes (Other)
  Sender: FDA-Public Use
  Company Number: CN-PFIZER INC-202101771101

PATIENT
  Age: 9 Year
  Sex: Female
  Weight: 22 kg

DRUGS (5)
  1. METHOTREXATE [Suspect]
     Active Substance: METHOTREXATE
     Indication: Acute leukaemia
     Dosage: 12.5 MG, SINGLE
     Route: 037
     Dates: start: 20210916, end: 20210916
  2. CYTARABINE [Suspect]
     Active Substance: CYTARABINE
     Indication: Acute leukaemia
     Dosage: 0.035 G, 1X/DAY
     Route: 037
     Dates: start: 20210916, end: 20210916
  3. CYTARABINE [Suspect]
     Active Substance: CYTARABINE
     Dosage: EVERY 12 HOURS
     Route: 041
     Dates: start: 20210917, end: 20210920
  4. OMACETAXINE MEPESUCCINATE [Suspect]
     Active Substance: OMACETAXINE MEPESUCCINATE
     Indication: Acute leukaemia
     Dosage: 2.600 ML, 1X/DAY
     Route: 041
     Dates: start: 20210917, end: 20210923
  5. DEXAMETHASONE SODIUM PHOSPHATE [Suspect]
     Active Substance: DEXAMETHASONE SODIUM PHOSPHATE
     Dosage: 2.5MG WITH METHOTREXATE, 2.5MG WITH CYTOSAR
     Route: 037
     Dates: start: 20210916, end: 20210916

REACTIONS (4)
  - Myelosuppression [Recovering/Resolving]
  - Dizziness [Recovering/Resolving]
  - Asthenia [Recovering/Resolving]
  - Pallor [Recovering/Resolving]

NARRATIVE: CASE EVENT DATE: 20210926
